FAERS Safety Report 8169995-7 (Version None)
Quarter: 2012Q1

REPORT INFORMATION
  Report Type: 
  Country: None (occurrence: None)
  Receive Date: 20120228
  Receipt Date: 20120215
  Transmission Date: 20120608
  Serious: Yes (Hospitalization, Other)
  Sender: FDA-Public Use
  Company Number: US-ELI_LILLY_AND_COMPANY-US201201003565

PATIENT
  Sex: Male
  Weight: 104 kg

DRUGS (2)
  1. LISINOPRIL [Concomitant]
     Indication: BLOOD PRESSURE INCREASED
     Dosage: UNK
  2. HUMALOG [Suspect]
     Indication: TYPE 1 DIABETES MELLITUS
     Dosage: UNK, OTHER
     Route: 058
     Dates: start: 20110101

REACTIONS (5)
  - DRUG INEFFECTIVE [None]
  - BLOOD GLUCOSE INCREASED [None]
  - GRAND MAL CONVULSION [None]
  - LOSS OF CONSCIOUSNESS [None]
  - DIABETES MELLITUS INADEQUATE CONTROL [None]
